FAERS Safety Report 8437085-1 (Version None)
Quarter: 2012Q2

REPORT INFORMATION
  Report Type: 
  Country: None (occurrence: None)
  Receive Date: 20120614
  Receipt Date: 20120406
  Transmission Date: 20120825
  Serious: No
  Sender: FDA-Public Use
  Company Number: US-AMGEN-USASP2012007966

PATIENT
  Sex: Female

DRUGS (3)
  1. LISINOPRIL [Concomitant]
     Dosage: 12.5 MG, UNK
  2. PROLIA [Suspect]
     Indication: OSTEOPOROSIS
     Dosage: 60 MG, Q6MO
     Route: 058
     Dates: start: 20110919, end: 20110919
  3. SYNTHROID [Concomitant]
     Dosage: 0.05 MG, UNK

REACTIONS (3)
  - FATIGUE [None]
  - BONE PAIN [None]
  - PAIN [None]
